FAERS Safety Report 9407174 (Version 1)
Quarter: 2013Q3

REPORT INFORMATION
  Report Type: Spontaneous
  Country: DE (occurrence: DE)
  Receive Date: 20130718
  Receipt Date: 20130718
  Transmission Date: 20140515
  Serious: Yes (Other)
  Sender: FDA-Public Use
  Company Number: GXKR2013DE002411

PATIENT
  Age: 85 Year
  Sex: Male

DRUGS (7)
  1. CIPROFLOXACIN [Suspect]
     Indication: PROSTATITIS
     Route: 048
  2. RAMIPRIL [Interacting]
     Route: 048
  3. METFORMIN [Concomitant]
  4. ALLOPURINOL [Concomitant]
  5. SIMVASTATIN [Concomitant]
  6. CRATAEGUTT NOVO [Concomitant]
  7. MARCUMAR [Concomitant]

REACTIONS (8)
  - Renal failure acute [Recovered/Resolved]
  - Nausea [Recovered/Resolved]
  - Decreased appetite [Recovered/Resolved]
  - Hyperhidrosis [Recovered/Resolved]
  - Sleep disorder [Recovered/Resolved]
  - Blood creatine increased [Recovered/Resolved]
  - Blood urea increased [Recovered/Resolved]
  - Drug interaction [Recovered/Resolved]
